FAERS Safety Report 7871389-6 (Version None)
Quarter: 2011Q4

REPORT INFORMATION
  Report Type: 
  Country: None (occurrence: None)
  Receive Date: 20111029
  Receipt Date: 20110301
  Transmission Date: 20120403
  Serious: No
  Sender: FDA-Public Use
  Company Number: US-AMGEN-USASP2011011734

PATIENT
  Age: 55 Year
  Sex: Female
  Weight: 92.517 kg

DRUGS (3)
  1. MEFENAMIC ACID [Concomitant]
     Indication: PAIN
  2. ENBREL [Suspect]
     Indication: PRODUCT USED FOR UNKNOWN INDICATION
     Dosage: 50 MG, QWK
     Dates: start: 20101001, end: 20101201
  3. IBANDRONATE SODIUM [Concomitant]

REACTIONS (3)
  - HEPATIC STEATOSIS [None]
  - RENAL CYST [None]
  - HEPATIC ENZYME INCREASED [None]
